FAERS Safety Report 9317761 (Version 1)
Quarter: 2013Q2

REPORT INFORMATION
  Report Type: Spontaneous
  Country: US (occurrence: US)
  Receive Date: 20130530
  Receipt Date: 20130530
  Transmission Date: 20140414
  Serious: No
  Sender: FDA-Public Use
  Company Number: US-GLAXOSMITHKLINE-A0980364A

PATIENT
  Age: 70 Year
  Sex: Male

DRUGS (17)
  1. VENTOLIN [Suspect]
     Indication: ASTHMA
     Dosage: 2PUFF AS REQUIRED
     Route: 055
     Dates: start: 201201, end: 201201
  2. ADVAIR [Concomitant]
  3. NEXIUM [Concomitant]
  4. METFORMIN [Concomitant]
  5. CRESTOR [Concomitant]
  6. AMITRIPTYLIN [Concomitant]
  7. FLEXERIL [Concomitant]
  8. CLONAZEPAM [Concomitant]
  9. CALCIUM [Concomitant]
  10. MAGNESIUM [Concomitant]
  11. ZINC [Concomitant]
  12. VITAMIN D3 [Concomitant]
  13. FLAX SEED OIL [Concomitant]
  14. FISH OIL [Concomitant]
  15. GARLIC [Concomitant]
  16. POTASSIUM GLUCONATE [Concomitant]
  17. MILK THISTLE [Concomitant]

REACTIONS (1)
  - Oral discomfort [Unknown]
